FAERS Safety Report 9171355 (Version 1)
Quarter: 2013Q1

REPORT INFORMATION
  Report Type: Spontaneous
  Country: US (occurrence: US)
  Receive Date: 20130319
  Receipt Date: 20130319
  Transmission Date: 20140127
  Serious: Yes (Other)
  Sender: FDA-Public Use
  Company Number: US-ELI_LILLY_AND_COMPANY-US201303005897

PATIENT
  Age: 25 Year
  Sex: Male

DRUGS (1)
  1. AXIRON [Suspect]
     Dosage: 60 MG, UNK

REACTIONS (1)
  - Jaundice [Recovered/Resolved]
